FAERS Safety Report 10216309 (Version 2)
Quarter: 2014Q2

REPORT INFORMATION
  Report Type: Spontaneous
  Country: JP (occurrence: JP)
  Receive Date: 20140604
  Receipt Date: 20140624
  Transmission Date: 20141212
  Serious: Yes (Hospitalization)
  Sender: FDA-Public Use
  Company Number: JP-NOVOPROD-411811

PATIENT
  Age: 71 Year
  Sex: Male
  Weight: 60 kg

DRUGS (1)
  1. LEVEMIR CHU [Suspect]
     Indication: TYPE 1 DIABETES MELLITUS
     Dosage: UNK
     Route: 058

REACTIONS (3)
  - Anti-insulin antibody positive [Not Recovered/Not Resolved]
  - Hypoglycaemia [Recovered/Resolved]
  - Glycosylated haemoglobin increased [Recovering/Resolving]
